FAERS Safety Report 24664852 (Version 1)
Quarter: 2024Q4

REPORT INFORMATION
  Report Type: Spontaneous
  Country: US (occurrence: None)
  Receive Date: 20241126
  Receipt Date: 20241126
  Transmission Date: 20250115
  Serious: Yes (Hospitalization)
  Sender: Public
  Company Number: None

PATIENT
  Age: 66 Year
  Sex: Male
  Weight: 104.33 kg

DRUGS (9)
  1. MYLOTARG [Suspect]
     Active Substance: GEMTUZUMAB OZOGAMICIN
     Indication: Acute myeloid leukaemia
     Dosage: 4.5 MG  DAYS 1, 4, 7, INTRAVENOUS DRIP?
     Dates: start: 20241109, end: 20241114
  2. TAGRAXOFUSP [Suspect]
     Active Substance: TAGRAXOFUSP
     Indication: Acute myeloid leukaemia
     Dosage: 7 MICROGRAM(S) KILOGRAMS (S) DAYS 5, 6, 7;   INTRAVENOUS DRIP ?
     Dates: start: 20241112, end: 20241114
  3. LEVAQUIN [Concomitant]
     Active Substance: LEVOFLOXACIN
  4. BACTRIM [Concomitant]
     Active Substance: SULFAMETHOXAZOLE\TRIMETHOPRIM
  5. POSACONAZOLE [Concomitant]
     Active Substance: POSACONAZOLE
  6. VALACYCLOVIR [Concomitant]
     Active Substance: VALACYCLOVIR HYDROCHLORIDE
  7. ALLOPURINOL [Concomitant]
     Active Substance: ALLOPURINOL
  8. METFORMIN [Concomitant]
     Active Substance: METFORMIN HYDROCHLORIDE
  9. SODIUM CHLORIDE [Concomitant]
     Active Substance: SODIUM CHLORIDE

REACTIONS (11)
  - Capillary leak syndrome [None]
  - Aspartate aminotransferase increased [None]
  - Acute kidney injury [None]
  - Neutrophil count decreased [None]
  - Hypophagia [None]
  - Fluid intake reduced [None]
  - Dehydration [None]
  - Decreased appetite [None]
  - Febrile neutropenia [None]
  - Sepsis [None]
  - Gram stain positive [None]

NARRATIVE: CASE EVENT DATE: 20241122
